FAERS Safety Report 5359271-X (Version None)
Quarter: 2007Q2

REPORT INFORMATION
  Report Type: 
  Country: None (occurrence: None)
  Receive Date: 20070615
  Receipt Date: 20070608
  Transmission Date: 20071010
  Serious: No
  Sender: FDA-Public Use
  Company Number: GB-AMGEN-US222681

PATIENT
  Sex: Male
  Weight: 105 kg

DRUGS (5)
  1. ENBREL [Suspect]
     Indication: PSORIATIC ARTHROPATHY
     Dosage: 50 MG WEEKLY, FREQUENCY UNKNOWN
     Route: 058
     Dates: start: 20070309, end: 20070503
  2. ENBREL [Suspect]
     Dosage: 50MG WEEKLY, FREQUENCY UNKNOWN
     Dates: start: 20070501
  3. BEZALIP-MONO [Concomitant]
     Indication: HYPERLIPIDAEMIA
     Route: 048
  4. DOXAZOSIN MESYLATE [Concomitant]
     Indication: HYPERTENSION
     Route: 048
  5. GLICLAZIDE [Concomitant]
     Indication: DIABETES MELLITUS
     Route: 048

REACTIONS (2)
  - RASH PAPULAR [None]
  - URTICARIA [None]
